FAERS Safety Report 5705091-3 (Version None)
Quarter: 2008Q2

REPORT INFORMATION
  Report Type: 
  Country: None (occurrence: None)
  Receive Date: 20080410
  Receipt Date: 20080331
  Transmission Date: 20081010
  Serious: Yes (Hospitalization, Congenital Anomaly)
  Sender: FDA-Public Use
  Company Number: 233123J08USA

PATIENT
  Sex: Female
  Weight: 2.903 kg

DRUGS (1)
  1. REBIF [Suspect]
     Indication: MULTIPLE SCLEROSIS
     Dosage: TRANSPLACENTAL
     Route: 064
     Dates: end: 20050101

REACTIONS (4)
  - CONGENITAL BLADDER ANOMALY [None]
  - CYSTITIS [None]
  - DEHYDRATION [None]
  - DRUG EXPOSURE DURING PREGNANCY [None]
